FAERS Safety Report 15572656 (Version 5)
Quarter: 2018Q4

REPORT INFORMATION
  Report Type: Spontaneous
  Country: JP (occurrence: JP)
  Receive Date: 20181031
  Receipt Date: 20181213
  Transmission Date: 20190205
  Serious: Yes (Death, Life-Threatening)
  Sender: FDA-Public Use
  Company Number: JP-MITSUBISHI TANABE PHARMA CORPORATION-MTPC2018-0029775

PATIENT
  Age: 77 Year
  Sex: Male
  Weight: 56 kg

DRUGS (3)
  1. SOLYUGEN F [Concomitant]
     Indication: EMBOLIC CEREBRAL INFARCTION
     Route: 041
     Dates: start: 20181025, end: 20181025
  2. GRTPA [Suspect]
     Active Substance: ALTEPLASE
     Indication: EMBOLIC CEREBRAL INFARCTION
     Route: 042
     Dates: start: 20181025, end: 20181025
  3. RADICUT [Suspect]
     Active Substance: EDARAVONE
     Indication: EMBOLIC CEREBRAL INFARCTION
     Route: 041
     Dates: start: 20181025, end: 20181025

REACTIONS (2)
  - Acute pulmonary oedema [Recovering/Resolving]
  - Haemorrhagic cerebral infarction [Fatal]

NARRATIVE: CASE EVENT DATE: 20181025
